FAERS Safety Report 16632882 (Version 3)
Quarter: 2022Q2

REPORT INFORMATION
  Report Type: Spontaneous
  Country: US (occurrence: US)
  Receive Date: 20190725
  Receipt Date: 20220606
  Transmission Date: 20220721
  Serious: No
  Sender: FDA-Public Use
  Company Number: US-PFIZER INC-2019153155

PATIENT
  Age: 47 Year
  Sex: Male
  Weight: 127.01 kg

DRUGS (4)
  1. SOMAVERT [Suspect]
     Active Substance: PEGVISOMANT
     Indication: Pituitary tumour
     Dosage: 30 MG, 1X/DAY
  2. SOMAVERT [Suspect]
     Active Substance: PEGVISOMANT
     Indication: Acromegaly
     Dosage: 10 MG, DAILY
     Dates: start: 20110908, end: 201901
  3. SOMAVERT [Suspect]
     Active Substance: PEGVISOMANT
     Dosage: 40 MG ON DAY 0 (LOADING DOSE OF 40 MG IN DOCTOR^S OFFICE)
     Route: 058
     Dates: start: 20220309, end: 20220309
  4. SOMAVERT [Suspect]
     Active Substance: PEGVISOMANT
     Dosage: 10 MG, 1X/DAY (EVERY DAY THEREAFTER)
     Route: 058
     Dates: start: 20220310, end: 202204

REACTIONS (1)
  - Insulin-like growth factor increased [Recovering/Resolving]
